FAERS Safety Report 24895225 (Version 1)
Quarter: 2025Q1

REPORT INFORMATION
  Report Type: Spontaneous
  Country: US (occurrence: None)
  Receive Date: 20250128
  Receipt Date: 20250128
  Transmission Date: 20250408
  Serious: Yes (Disabling, Other)
  Sender: FDA-CTU
  Company Number: None

PATIENT
  Sex: Female
  Weight: 117 kg

DRUGS (2)
  1. OZEMPIC [Suspect]
     Active Substance: SEMAGLUTIDE
     Indication: Weight decreased
  2. OZEMPIC [Suspect]
     Active Substance: SEMAGLUTIDE
     Indication: Glucose tolerance impaired

REACTIONS (13)
  - Nausea [None]
  - Vomiting [None]
  - Insomnia [None]
  - Anxiety [None]
  - Depression [None]
  - Fear [None]
  - Crying [None]
  - Suicidal ideation [None]
  - Dehydration [None]
  - Sleep disorder [None]
  - Blood pressure decreased [None]
  - Dizziness [None]
  - Asthenia [None]
